FAERS Safety Report 8380150-8 (Version None)
Quarter: 2012Q2

REPORT INFORMATION
  Report Type: 
  Country: None (occurrence: None)
  Receive Date: 20120523
  Receipt Date: 20120515
  Transmission Date: 20120825
  Serious: No
  Sender: FDA-Public Use
  Company Number: US-B.I. PHARMACEUTICALS,INC./RIDGEFIELD-2012-BP-10871BP

PATIENT
  Age: 62 Year
  Sex: Male

DRUGS (9)
  1. ASPIRIN [Concomitant]
     Indication: CARDIAC ASSISTANCE DEVICE USER
     Dosage: 81 MG
     Route: 048
  2. COREG [Concomitant]
     Indication: CARDIAC FAILURE CONGESTIVE
     Dosage: 6.25 MG
     Route: 048
  3. COUMADIN [Concomitant]
     Indication: CARDIAC ASSISTANCE DEVICE USER
     Dosage: 5 MG
     Route: 048
  4. XANAX [Concomitant]
     Indication: ANXIETY
     Dosage: 4 MG
     Route: 048
  5. LASIX [Concomitant]
     Indication: FLUID RETENTION
     Dosage: 160 MG
     Route: 048
  6. INSULIN [Concomitant]
     Indication: DIABETES MELLITUS
     Route: 058
  7. SPIRIVA [Suspect]
     Indication: CHRONIC OBSTRUCTIVE PULMONARY DISEASE
     Dosage: 18 MCG
     Route: 055
     Dates: start: 20110101, end: 20120401
  8. AMBIEN [Concomitant]
     Indication: INSOMNIA
     Dosage: 10 MG
     Route: 048
  9. LISINOPRIL [Concomitant]
     Indication: CARDIAC FAILURE CONGESTIVE
     Dosage: 2.5 MG
     Route: 048

REACTIONS (2)
  - PRODUCTIVE COUGH [None]
  - BLISTER [None]
